FAERS Safety Report 4493271-7 (Version None)
Quarter: 2004Q4

REPORT INFORMATION
  Report Type: 
  Country: None (occurrence: None)
  Receive Date: 20041102
  Receipt Date: 20041020
  Transmission Date: 20050328
  Serious: Yes (Hospitalization, Other)
  Sender: FDA-Public Use
  Company Number: USA040773390

PATIENT
  Age: 52 Year
  Sex: Female

DRUGS (1)
  1. FORTEO [Suspect]
     Indication: OSTEOPOROSIS
     Dosage: 20 UG DAY
     Dates: start: 20040721

REACTIONS (21)
  - BURNING SENSATION [None]
  - CONTUSION [None]
  - CORONARY ARTERY THROMBOSIS [None]
  - ERYTHEMA [None]
  - FEELING HOT [None]
  - FLUSHING [None]
  - HIP FRACTURE [None]
  - INJECTION SITE ERYTHEMA [None]
  - INJECTION SITE HAEMORRHAGE [None]
  - INJECTION SITE PAIN [None]
  - INJECTION SITE STINGING [None]
  - MEDICATION ERROR [None]
  - MYALGIA [None]
  - NAUSEA [None]
  - NERVOUSNESS [None]
  - OVERDOSE [None]
  - PALPITATIONS [None]
  - PERIORBITAL HAEMATOMA [None]
  - PHARMACEUTICAL PRODUCT COMPLAINT [None]
  - POSTOPERATIVE THROMBOSIS [None]
  - TREATMENT NONCOMPLIANCE [None]
